FAERS Safety Report 4307401-0 (Version None)
Quarter: 2004Q1

REPORT INFORMATION
  Report Type: 
  Country: None (occurrence: None)
  Receive Date: 20040226
  Receipt Date: 20040224
  Transmission Date: 20041129
  Serious: No
  Sender: FDA-Public Use
  Company Number: 2003166825JP

PATIENT
  Age: 72 Year
  Sex: Male

DRUGS (4)
  1. CAVERJECT [Suspect]
     Indication: BLOOD PRESSURE INCREASED
  2. PROPOFOL [Concomitant]
  3. FENTANYL [Concomitant]
  4. SEVOFLURANE [Concomitant]

REACTIONS (4)
  - ANAESTHETIC COMPLICATION [None]
  - CYANOSIS [None]
  - ISCHAEMIA [None]
  - TONGUE DISORDER [None]
